FAERS Safety Report 20167958 (Version 1)
Quarter: 2021Q4

REPORT INFORMATION
  Report Type: Report from Study
  Country: EG (occurrence: EG)
  Receive Date: 20211210
  Receipt Date: 20211210
  Transmission Date: 20220303
  Serious: Yes (Other)
  Sender: FDA-Public Use
  Company Number: EG-NOVARTISPH-NVSC2021EG280400

PATIENT
  Sex: Male

DRUGS (3)
  1. COSENTYX [Suspect]
     Active Substance: SECUKINUMAB
     Indication: Psoriasis
     Dosage: 150 MG, QMO
     Route: 058
     Dates: start: 201810, end: 201903
  2. COSENTYX [Suspect]
     Active Substance: SECUKINUMAB
     Dosage: 300 MG, QMO
     Route: 058
  3. FUCIDIN [Concomitant]
     Active Substance: FUSIDATE SODIUM
     Indication: Abscess
     Dosage: UNK (AS NEEDED)
     Route: 065
     Dates: start: 2018

REACTIONS (7)
  - Furuncle [Not Recovered/Not Resolved]
  - Abscess limb [Not Recovered/Not Resolved]
  - Subcutaneous abscess [Not Recovered/Not Resolved]
  - Condition aggravated [Not Recovered/Not Resolved]
  - Product prescribing error [Not Recovered/Not Resolved]
  - Decreased immune responsiveness [Unknown]
  - Infection [Unknown]

NARRATIVE: CASE EVENT DATE: 20180101
